FAERS Safety Report 6088097-7 (Version None)
Quarter: 2009Q1

REPORT INFORMATION
  Report Type: 
  Country: None (occurrence: None)
  Receive Date: 20090218
  Receipt Date: 20090203
  Transmission Date: 20090719
  Serious: Yes (Other)
  Sender: FDA-Public Use
  Company Number: 8042863

PATIENT
  Age: 40 Year
  Sex: Male

DRUGS (5)
  1. LEVETIRACETAM [Suspect]
     Dosage: 250 MG 1/D
  2. LEVETIRACETAM [Suspect]
     Dosage: 250 MG 2/D
  3. LEVETIRACETAM [Suspect]
     Dosage: 50 MG 2/D
  4. LEVETIRACETAM [Suspect]
     Dosage: 750 MG 2/D
  5. LEVETIRACETAM [Suspect]
     Dosage: 1000 MG 2/D

REACTIONS (1)
  - CONVULSION [None]
